FAERS Safety Report 15472138 (Version 2)
Quarter: 2018Q4

REPORT INFORMATION
  Report Type: Spontaneous
  Country: JP (occurrence: JP)
  Receive Date: 20181008
  Receipt Date: 20181204
  Transmission Date: 20190205
  Serious: Yes (Other)
  Sender: FDA-Public Use
  Company Number: JP-ROCHE-2194813

PATIENT
  Age: 54 Year
  Sex: Male
  Weight: 78.3 kg

DRUGS (4)
  1. LUCENTIS [Suspect]
     Active Substance: RANIBIZUMAB
     Indication: DIABETIC RETINAL OEDEMA
     Route: 050
     Dates: start: 20150604
  2. EYLEA [Concomitant]
     Active Substance: AFLIBERCEPT
     Indication: DIABETIC RETINAL OEDEMA
     Route: 031
  3. EYLEA [Concomitant]
     Active Substance: AFLIBERCEPT
     Route: 031
  4. LUCENTIS [Suspect]
     Active Substance: RANIBIZUMAB
     Route: 050

REACTIONS (3)
  - Diabetic retinal oedema [Unknown]
  - Visual acuity reduced [Unknown]
  - Diabetic retinopathy [Recovered/Resolved with Sequelae]

NARRATIVE: CASE EVENT DATE: 20151008
